FAERS Safety Report 22866875 (Version 2)
Quarter: 2024Q3

REPORT INFORMATION
  Report Type: Report from Study
  Country: IT (occurrence: IT)
  Receive Date: 20230825
  Receipt Date: 20240715
  Transmission Date: 20241016
  Serious: Yes (Hospitalization)
  Sender: TEVA
  Company Number: None

PATIENT
  Age: 2 Year
  Sex: Female
  Weight: 11 kg

DRUGS (4)
  1. VINCRISTINE [Suspect]
     Active Substance: VINCRISTINE
     Indication: Aesthesioneuroblastoma
     Dosage: VINCRISTINE TEVA ITALIA
     Route: 065
     Dates: start: 20230620, end: 20230620
  2. COSMEGEN [Suspect]
     Active Substance: DACTINOMYCIN
     Indication: Aesthesioneuroblastoma
     Route: 065
     Dates: start: 20230620, end: 20230620
  3. IFOSFAMIDE [Suspect]
     Active Substance: IFOSFAMIDE
     Indication: Aesthesioneuroblastoma
     Route: 065
     Dates: start: 20230620, end: 20230621
  4. DOXORUBICIN HYDROCHLORIDE [Suspect]
     Active Substance: DOXORUBICIN HYDROCHLORIDE
     Indication: Aesthesioneuroblastoma
     Dosage: DOXORUBICINA ACCORD HEALTHCARE ITALIA
     Route: 042
     Dates: start: 20230620, end: 20230621

REACTIONS (1)
  - Febrile neutropenia [Recovered/Resolved]

NARRATIVE: CASE EVENT DATE: 20230709
